FAERS Safety Report 13064187 (Version 1)
Quarter: 2016Q4

REPORT INFORMATION
  Report Type: Spontaneous
  Country: NO (occurrence: NO)
  Receive Date: 20161227
  Receipt Date: 20161227
  Transmission Date: 20170207
  Serious: Yes (Congenital Anomaly)
  Sender: FDA-Public Use
  Company Number: PHHY2016NO172580

PATIENT
  Sex: Male
  Weight: 2.68 kg

DRUGS (10)
  1. TRILEPTAL [Suspect]
     Active Substance: OXCARBAZEPINE
     Indication: FOETAL EXPOSURE DURING PREGNANCY
     Dosage: PATIENT^S MOTHER DOSE: 600 MG BID (1200 MG)
     Route: 064
  2. TRILEPTAL [Suspect]
     Active Substance: OXCARBAZEPINE
     Dosage: PATIENT^S MOTHER DOSE: 600 MG BID (1200 MG)
     Route: 063
  3. KEPPRA [Suspect]
     Active Substance: LEVETIRACETAM
     Indication: FOETAL EXPOSURE DURING PREGNANCY
     Dosage: PATIENT^S MOTHER DOSE 500 PLUS 1000 MG (1500 MG)
     Route: 064
  4. FOLIC ACID. [Concomitant]
     Active Substance: FOLIC ACID
     Indication: FOETAL EXPOSURE DURING PREGNANCY
     Dosage: PATIENT^S MOTHER DOSE: 800 UG QD
     Route: 065
  5. ORFIRIL [Suspect]
     Active Substance: VALPROIC ACID
     Indication: FOETAL EXPOSURE DURING PREGNANCY
     Dosage: PATIENT^S MOTHER DOSE: 600 MG, BID (1200 MG)
     Route: 064
  6. ORFIRIL [Suspect]
     Active Substance: VALPROIC ACID
     Dosage: PATIENT^S MOTHER DOSE: 600 MG, BID (1200 MG)
     Route: 064
  7. ORFIRIL [Suspect]
     Active Substance: VALPROIC ACID
     Dosage: PATIENT^S MOTHER DOSE: 1200 MG (600 X 2)
     Route: 064
  8. ORFIRIL [Suspect]
     Active Substance: VALPROIC ACID
     Dosage: PATIENT^S MOTHER DOSE: 900 MG (600 PLUS 300)
     Route: 064
  9. ORFIRIL [Suspect]
     Active Substance: VALPROIC ACID
     Dosage: PATIENT^S MOTHER DOSE: 1200 MG (600 X 2)
     Route: 064
  10. KEPPRA [Suspect]
     Active Substance: LEVETIRACETAM
     Dosage: PATIENT^S MOTHER DOSE: 1500 MG (500 PLUS 1000)
     Route: 063

REACTIONS (10)
  - Exposure during breast feeding [Unknown]
  - Hypotonia neonatal [Unknown]
  - Foetal exposure during pregnancy [Recovered/Resolved]
  - Autism [Unknown]
  - Arnold-Chiari malformation [Unknown]
  - Cyanosis [Unknown]
  - Premature baby [Recovered/Resolved]
  - Polydactyly [Unknown]
  - Neonatal respiratory distress syndrome [Unknown]
  - Jaundice neonatal [Unknown]

NARRATIVE: CASE EVENT DATE: 2010
